FAERS Safety Report 11525928 (Version 1)
Quarter: 2015Q3

REPORT INFORMATION
  Report Type: Spontaneous
  Country: US (occurrence: US)
  Receive Date: 20150918
  Receipt Date: 20150918
  Transmission Date: 20151125
  Serious: No
  Sender: FDA-Public Use
  Company Number: US-GLAXOSMITHKLINE-US2015130425

PATIENT
  Age: 72 Year
  Sex: Female

DRUGS (9)
  1. DIOVAN [Concomitant]
     Active Substance: VALSARTAN
  2. AMLODIPINE [Concomitant]
     Active Substance: AMLODIPINE BESYLATE
  3. SERTRALINE [Concomitant]
     Active Substance: SERTRALINE HYDROCHLORIDE
  4. BRIMONIDINE [Concomitant]
     Active Substance: BRIMONIDINE TARTRATE
  5. SYNTHROID [Concomitant]
     Active Substance: LEVOTHYROXINE SODIUM
  6. MORPHINE SULFATE EXTENDED-RELEASE [Concomitant]
     Active Substance: MORPHINE SULFATE
  7. BENLYSTA [Suspect]
     Active Substance: BELIMUMAB
     Indication: SYSTEMIC LUPUS ERYTHEMATOSUS
     Dosage: UNK
     Route: 042
  8. ASPIRIN (BABY) [Concomitant]
     Active Substance: ASPIRIN
  9. SIMVASTATIN. [Concomitant]
     Active Substance: SIMVASTATIN

REACTIONS (8)
  - Oral pruritus [Unknown]
  - Arthralgia [Unknown]
  - Nausea [Recovered/Resolved]
  - Back pain [Unknown]
  - Palpitations [Recovered/Resolved]
  - Diarrhoea [Recovered/Resolved]
  - Confusional state [Recovered/Resolved]
  - Therapeutic response unexpected [Unknown]

NARRATIVE: CASE EVENT DATE: 2015
